FAERS Safety Report 5702195-6 (Version None)
Quarter: 2008Q2

REPORT INFORMATION
  Report Type: 
  Country: None (occurrence: None)
  Receive Date: 20080411
  Receipt Date: 20071207
  Transmission Date: 20081010
  Serious: No
  Sender: FDA-Public Use
  Company Number: US-ABBOTT-07P-163-0428193-00

PATIENT
  Sex: Female
  Weight: 61.29 kg

DRUGS (1)
  1. DEPAKOTE [Suspect]
     Indication: MIGRAINE
     Route: 048
     Dates: start: 20000101

REACTIONS (2)
  - FUNGAL INFECTION [None]
  - HUMAN PAPILLOMA VIRUS TEST POSITIVE [None]
